APPROVED DRUG PRODUCT: IBUPROFEN
Active Ingredient: IBUPROFEN
Strength: 800MG
Dosage Form/Route: TABLET;ORAL
Application: A215318 | Product #003 | TE Code: AB
Applicant: YICHANG HUMANWELL PHARMACEUTICAL CO LTD
Approved: Mar 30, 2022 | RLD: No | RS: No | Type: RX